FAERS Safety Report 9319268 (Version 1)
Quarter: 2013Q2

REPORT INFORMATION
  Report Type: Spontaneous
  Country: US (occurrence: None)
  Receive Date: 20130524
  Receipt Date: 20130524
  Transmission Date: 20140414
  Serious: Yes (Other)
  Sender: FDA-Public Use
  Company Number: CLCY20130105

PATIENT
  Sex: Female

DRUGS (1)
  1. COLCRYS 0.6 MG [Suspect]
     Indication: FAMILIAL MEDITERRANEAN FEVER
     Dates: start: 200907

REACTIONS (1)
  - Thyroid cancer [None]
